FAERS Safety Report 8910798 (Version 2)
Quarter: 2012Q4

REPORT INFORMATION
  Report Type: 
  Country: BR (occurrence: BR)
  Receive Date: 20121116
  Receipt Date: 20121127
  Transmission Date: 20130627
  Serious: Yes (Hospitalization, Other)
  Sender: FDA-Public Use
  Company Number: BR-JNJFOC-20121106414

PATIENT
  Age: 21 Month
  Sex: Male

DRUGS (3)
  1. ZYRTEC [Suspect]
     Route: 048
  2. ZYRTEC [Suspect]
     Indication: VIRAL INFECTION
     Route: 048
     Dates: start: 20080814, end: 20080814
  3. FLIXOTIDE [Suspect]
     Indication: ASTHMA
     Route: 065
     Dates: start: 20080701

REACTIONS (6)
  - Oculogyric crisis [Not Recovered/Not Resolved]
  - Cough [Not Recovered/Not Resolved]
  - Eye movement disorder [Not Recovered/Not Resolved]
  - Pyrexia [Not Recovered/Not Resolved]
  - Rhinorrhoea [Not Recovered/Not Resolved]
  - Off label use [Unknown]
